FAERS Safety Report 5845848-1 (Version None)
Quarter: 2008Q3

REPORT INFORMATION
  Report Type: 
  Country: None (occurrence: None)
  Receive Date: 20080814
  Receipt Date: 20080811
  Transmission Date: 20090109
  Serious: Yes (Hospitalization)
  Sender: FDA-Public Use
  Company Number: IL-BOEHRINGER INGELHEIM GMBH, GERMANY-2008-DE-04718GD

PATIENT
  Age: 48 Year
  Sex: Male
  Weight: 120 kg

DRUGS (13)
  1. IPRATROPIUM BROMIDE [Suspect]
     Indication: ASTHMA
     Route: 055
  2. HYDROCORTISONE [Suspect]
     Indication: ASTHMA
     Route: 042
  3. AMINOPHYLLINE [Suspect]
     Indication: ASTHMA
     Route: 042
  4. BETA-2 AGONIST [Suspect]
     Indication: ASTHMA
     Route: 055
  5. BETA-2 AGONIST [Suspect]
     Route: 042
  6. KETALAR [Suspect]
     Indication: ASTHMA
     Route: 042
  7. MAGNESIUM SULFATE [Suspect]
     Indication: ASTHMA
     Route: 042
  8. ALBUTEROL SULFATE [Suspect]
     Indication: ASTHMA
     Route: 042
  9. MUSCLE RELAXANT [Suspect]
     Indication: ASTHMA
     Route: 042
  10. HALOTHANE [Suspect]
     Indication: ASTHMA
  11. SODIUM BICARBONATE [Suspect]
     Indication: ASTHMA
  12. ANTI-LEUKOTRIENE [Suspect]
     Indication: ASTHMA
  13. PROPOFOL [Concomitant]
     Indication: SEDATIVE THERAPY

REACTIONS (6)
  - BLOOD PH DECREASED [None]
  - BLOOD PRESSURE INCREASED [None]
  - CONDITION AGGRAVATED [None]
  - DRUG INEFFECTIVE [None]
  - HYPERCAPNIA [None]
  - SINUS TACHYCARDIA [None]
